FAERS Safety Report 6290313-3 (Version None)
Quarter: 2009Q3

REPORT INFORMATION
  Report Type: 
  Country: None (occurrence: None)
  Receive Date: 20090730
  Receipt Date: 20090219
  Transmission Date: 20100115
  Serious: No
  Sender: FDA-Public Use
  Company Number: US-BRISTOL-MYERS SQUIBB COMPANY-14513212

PATIENT
  Age: 73 Year
  Sex: Male
  Weight: 93 kg

DRUGS (2)
  1. COUMADIN [Suspect]
     Dosage: RESTARTED ON 21-JAN-2009.
  2. LOVENOX [Suspect]
     Indication: DEEP VEIN THROMBOSIS
     Dosage: ENOXAPARIN SOLUTION FOR INJECTION
     Dates: start: 20090119

REACTIONS (1)
  - HAEMATURIA [None]
